FAERS Safety Report 5253171-1 (Version None)
Quarter: 2007Q1

REPORT INFORMATION
  Report Type: 
  Country: None (occurrence: None)
  Receive Date: 20070301
  Receipt Date: 20070219
  Transmission Date: 20070707
  Serious: Yes (Other)
  Sender: FDA-Public Use
  Company Number: PHEH2004US07653

PATIENT
  Age: 51 Year
  Sex: Female
  Weight: 77.097 kg

DRUGS (12)
  1. ESTRADERM [Suspect]
     Indication: HORMONE REPLACEMENT THERAPY
     Dosage: 0.05 MG, UNK
     Route: 062
  2. VIVELLE [Suspect]
     Indication: HORMONE REPLACEMENT THERAPY
     Dosage: 0.05 MG, UNK
     Route: 062
  3. PREMARIN [Suspect]
  4. PREMPRO [Suspect]
  5. PROVERA [Suspect]
     Dosage: UNK, UNK
  6. PREDNISONE [Concomitant]
     Dosage: 10 MG, UNK
     Route: 048
     Dates: start: 19930101
  7. CELLCEPT [Concomitant]
     Dosage: 1000 MG, BID
     Route: 048
  8. NEORAL [Concomitant]
     Dosage: 175 MG, BID
     Route: 048
     Dates: start: 19930101
  9. PROCARDIA [Concomitant]
     Dates: start: 19930101
  10. MAGNESIUM OXIDE [Concomitant]
     Dosage: 800 MG/AM, 1200 MG/PM
     Route: 048
     Dates: start: 19930101
  11. CITRACAL [Concomitant]
     Dates: start: 19930101
  12. VITAMIN D [Concomitant]
     Route: 048
     Dates: start: 19930101

REACTIONS (24)
  - ANXIETY [None]
  - ARTERITIS [None]
  - BREAST CANCER IN SITU [None]
  - BREAST CYST [None]
  - BREAST MASS [None]
  - BREAST PROSTHESIS IMPLANTATION [None]
  - EMOTIONAL DISTRESS [None]
  - ENDOMETRIAL HYPERPLASIA [None]
  - EPSTEIN-BARR VIRAEMIA [None]
  - FALL [None]
  - GLOMERULAR FILTRATION RATE ABNORMAL [None]
  - HYPERTENSION [None]
  - INJURY [None]
  - METRORRHAGIA [None]
  - MODIFIED RADICAL MASTECTOMY [None]
  - OCCULT BLOOD POSITIVE [None]
  - OSTEOPENIA [None]
  - PRURITUS GENITAL [None]
  - RENAL CYST [None]
  - RENAL IMPAIRMENT [None]
  - SCAR [None]
  - TIBIA FRACTURE [None]
  - VAGINAL INFECTION [None]
  - VULVOVAGINAL MYCOTIC INFECTION [None]
